FAERS Safety Report 18337179 (Version 13)
Quarter: 2022Q4

REPORT INFORMATION
  Report Type: Spontaneous
  Country: CA (occurrence: CA)
  Receive Date: 20201002
  Receipt Date: 20221229
  Transmission Date: 20230113
  Serious: Yes (Other)
  Sender: FDA-Public Use
  Company Number: CA-CELLTRION INC.-2020CA027130

PATIENT

DRUGS (17)
  1. INFLECTRA [Suspect]
     Active Substance: INFLIXIMAB-DYYB
     Indication: Crohn^s disease
     Dosage: 300 MG AT WEEK 0, 2, 6 AND THEN EVERY 8 WEEKS
     Route: 042
     Dates: start: 20200823
  2. INFLECTRA [Suspect]
     Active Substance: INFLIXIMAB-DYYB
     Dosage: 300 MG AT WEEK 0, 2, 6 AND THEN EVERY 8 WEEKS
     Route: 042
     Dates: start: 20200908
  3. INFLECTRA [Suspect]
     Active Substance: INFLIXIMAB-DYYB
     Dosage: 300 MG AT WEEK 0, 2, 6 AND THEN EVERY 8 WEEKS
     Route: 042
     Dates: start: 20201005
  4. INFLECTRA [Suspect]
     Active Substance: INFLIXIMAB-DYYB
     Dosage: 300 MG AT WEEK 0, 2, 6 AND THEN EVERY 8 WEEKS
     Route: 042
     Dates: start: 20201130
  5. INFLECTRA [Suspect]
     Active Substance: INFLIXIMAB-DYYB
     Dosage: 300 MG AT WEEK 0, 2, 6 AND THEN EVERY 8 WEEKS
     Route: 042
     Dates: start: 20201130
  6. INFLECTRA [Suspect]
     Active Substance: INFLIXIMAB-DYYB
     Dosage: 300 MG AT WEEK 0, 2, 6 AND THEN EVERY 8 WEEKS
     Route: 042
     Dates: start: 20210323
  7. INFLECTRA [Suspect]
     Active Substance: INFLIXIMAB-DYYB
     Dosage: 300 MG AT WEEK 0, 2, 6 AND THEN EVERY 8 WEEKS
     Route: 042
     Dates: start: 20210518
  8. INFLECTRA [Suspect]
     Active Substance: INFLIXIMAB-DYYB
     Dosage: 300 MG AT WEEK 0, 2, 6 AND THEN EVERY 8 WEEKS
     Route: 042
     Dates: start: 20210907
  9. INFLECTRA [Suspect]
     Active Substance: INFLIXIMAB-DYYB
     Dosage: 300 MG AT WEEK 0, 2, 6 AND THEN EVERY 8 WEEKS
     Route: 042
     Dates: start: 20211102
  10. INFLECTRA [Suspect]
     Active Substance: INFLIXIMAB-DYYB
     Dosage: 300 MG AT WEEK 0, 2, 6 AND THEN EVERY 8 WEEKS
     Route: 042
     Dates: start: 20220104
  11. INFLECTRA [Suspect]
     Active Substance: INFLIXIMAB-DYYB
     Dosage: 300 MG AT WEEK 0, 2, 6 AND THEN EVERY 8 WEEKS
     Route: 042
     Dates: start: 20220302
  12. INFLECTRA [Suspect]
     Active Substance: INFLIXIMAB-DYYB
     Dosage: 300 MG AT WEEK 0, 2, 6 AND THEN EVERY 8 WEEKS
     Route: 042
     Dates: start: 20220426
  13. INFLECTRA [Suspect]
     Active Substance: INFLIXIMAB-DYYB
     Dosage: 300 MG AT WEEK 0, 2, 6 AND THEN EVERY 8 WEEKS
     Route: 042
     Dates: start: 20220620
  14. INFLECTRA [Suspect]
     Active Substance: INFLIXIMAB-DYYB
     Dosage: 300 MG AT WEEK 0, 2, 6 AND THEN EVERY 8 WEEKS
     Route: 042
     Dates: start: 20221011
  15. INFLECTRA [Suspect]
     Active Substance: INFLIXIMAB-DYYB
     Dosage: 300 MG AT WEEK 0, 2, 6 AND THEN EVERY 8 WEEKS
     Route: 042
     Dates: start: 20221206
  16. IMURAN [Concomitant]
     Active Substance: AZATHIOPRINE
     Dosage: 100 MG
  17. PREDNISONE [Concomitant]
     Active Substance: PREDNISONE
     Dosage: UNK

REACTIONS (15)
  - Weight decreased [Unknown]
  - Feeling hot [Unknown]
  - Throat irritation [Unknown]
  - Skin lesion [Not Recovered/Not Resolved]
  - Blood creatinine increased [Not Recovered/Not Resolved]
  - Blood alkaline phosphatase increased [Not Recovered/Not Resolved]
  - Serum ferritin decreased [Not Recovered/Not Resolved]
  - Blood magnesium decreased [Not Recovered/Not Resolved]
  - Blood potassium decreased [Not Recovered/Not Resolved]
  - Rash [Unknown]
  - Drug level decreased [Unknown]
  - Arthralgia [Unknown]
  - Condition aggravated [Recovering/Resolving]
  - Off label use [Unknown]
  - Intentional product use issue [Unknown]

NARRATIVE: CASE EVENT DATE: 20200823
